FAERS Safety Report 6183366-4 (Version None)
Quarter: 2009Q2

REPORT INFORMATION
  Report Type: 
  Country: None (occurrence: None)
  Receive Date: 20090506
  Receipt Date: 20090428
  Transmission Date: 20091009
  Serious: Yes (Death, Life-Threatening, Other)
  Sender: FDA-Public Use
  Company Number: 2009JP001791

PATIENT
  Age: 59 Year
  Sex: Male

DRUGS (10)
  1. PROGRAF [Suspect]
     Indication: BONE MARROW TRANSPLANT
     Dosage: 1.6 G, UID/QD, IV NOS
     Route: 042
     Dates: start: 20080703
  2. PROGRAF [Suspect]
     Indication: BONE MARROW TRANSPLANT
  3. SOLU-MEDROL [Suspect]
     Indication: BONE MARROW TRANSPLANT
     Dosage: 500 MG, UID/QD, IV NOS; 2 MG/KG,  /D
     Route: 042
     Dates: start: 20080802, end: 20080804
  4. METHOTREXATE [Concomitant]
  5. BUSULFAN (BUSULFAN) INJECTION [Concomitant]
  6. FLUDARABINE PHOSPHATE [Concomitant]
  7. PREDNISOLONE [Concomitant]
  8. CELLCEPT [Concomitant]
  9. FUNGUARD (MICAFUNGIN) INJECTION [Concomitant]
  10. FRAGMIN [Concomitant]

REACTIONS (8)
  - ASCITES [None]
  - BLOOD BETA-D-GLUCAN INCREASED [None]
  - CYTOMEGALOVIRUS INFECTION [None]
  - DISEASE COMPLICATION [None]
  - GRAFT VERSUS HOST DISEASE [None]
  - PNEUMONIA FUNGAL [None]
  - RESPIRATORY FAILURE [None]
  - THROMBOTIC MICROANGIOPATHY [None]
